FAERS Safety Report 18248008 (Version 4)
Quarter: 2022Q3

REPORT INFORMATION
  Report Type: Spontaneous
  Country: US (occurrence: None)
  Receive Date: 20200909
  Receipt Date: 20220727
  Transmission Date: 20221026
  Serious: Yes (Hospitalization, Other)
  Sender: FDA-Public Use
  Company Number: 2020SF11870

PATIENT
  Age: 18417 Day
  Sex: Female
  Weight: 90.7 kg

DRUGS (54)
  1. PRILOSEC OTC [Suspect]
     Active Substance: OMEPRAZOLE MAGNESIUM
     Indication: Gastrooesophageal reflux disease
     Route: 048
     Dates: start: 200001, end: 201512
  2. PRILOSEC OTC [Suspect]
     Active Substance: OMEPRAZOLE MAGNESIUM
     Indication: Gastrooesophageal reflux disease
     Route: 048
     Dates: start: 2003, end: 2015
  3. NEXIUM [Suspect]
     Active Substance: ESOMEPRAZOLE MAGNESIUM
     Indication: Gastrooesophageal reflux disease
     Route: 048
     Dates: start: 2010, end: 2015
  4. OMEPRAZOLE [Suspect]
     Active Substance: OMEPRAZOLE
     Indication: Gastrooesophageal reflux disease
     Dosage: GENERIC
     Route: 065
     Dates: start: 2015
  5. PREVACID [Suspect]
     Active Substance: LANSOPRAZOLE
     Indication: Gastrooesophageal reflux disease
     Route: 065
     Dates: start: 200001, end: 201512
  6. PREVACID [Suspect]
     Active Substance: LANSOPRAZOLE
     Indication: Gastrooesophageal reflux disease
     Route: 065
     Dates: start: 2010, end: 2015
  7. LISINOPRIL [Concomitant]
     Active Substance: LISINOPRIL
     Indication: Blood pressure abnormal
     Dates: start: 20080807, end: 20100724
  8. FUROSEMIDE [Concomitant]
     Active Substance: FUROSEMIDE
     Indication: Nephropathy
     Dates: start: 20131018, end: 201312
  9. LOSARTAN [Concomitant]
     Active Substance: LOSARTAN
     Indication: Blood pressure abnormal
     Dates: start: 20110201
  10. IBUPROFEN [Concomitant]
     Active Substance: IBUPROFEN
     Indication: Pain
  11. FAMOTIDINE [Concomitant]
     Active Substance: FAMOTIDINE
     Dates: start: 2017
  12. ROLAIDS [Concomitant]
     Active Substance: CALCIUM CARBONATE\MAGNESIUM HYDROXIDE
  13. TUMS [Concomitant]
     Active Substance: CALCIUM CARBONATE
  14. RANITIDINE [Concomitant]
     Active Substance: RANITIDINE
  15. ACYCLOVIR [Concomitant]
     Active Substance: ACYCLOVIR
  16. DIAZEPAM [Concomitant]
     Active Substance: DIAZEPAM
  17. TRAZODONE [Concomitant]
     Active Substance: TRAZODONE HYDROCHLORIDE
  18. TIZANIDINE [Concomitant]
     Active Substance: TIZANIDINE
  19. CITALOPRAM [Concomitant]
     Active Substance: CITALOPRAM HYDROBROMIDE
  20. HYDROCODONE BITARTRATE AND ACETAMINOPHEN [Concomitant]
     Active Substance: ACETAMINOPHEN\HYDROCODONE BITARTRATE
  21. PREDNISONE [Concomitant]
     Active Substance: PREDNISONE
  22. FOLIC ACID [Concomitant]
     Active Substance: FOLIC ACID
  23. POTASSIUM [Concomitant]
     Active Substance: POTASSIUM
  24. IRON [Concomitant]
     Active Substance: IRON
  25. AMLODIPINE [Concomitant]
     Active Substance: AMLODIPINE BESYLATE
  26. CLOBETASOL [Concomitant]
     Active Substance: CLOBETASOL
  27. GABAPENTIN [Concomitant]
     Active Substance: GABAPENTIN
  28. MONTELUKAST [Concomitant]
     Active Substance: MONTELUKAST SODIUM
  29. IPRATROPIUM [Concomitant]
     Active Substance: IPRATROPIUM
  30. VENTOLIN [Concomitant]
     Active Substance: ALBUTEROL SULFATE
  31. PAROXETINE [Concomitant]
     Active Substance: PAROXETINE
  32. HYDROXYZINE [Concomitant]
     Active Substance: HYDROXYZINE HYDROCHLORIDE
  33. BETAMETHASONE [Concomitant]
     Active Substance: BETAMETHASONE
  34. CARVEDILOL [Concomitant]
     Active Substance: CARVEDILOL
  35. ZOFRAN [Concomitant]
     Active Substance: ONDANSETRON HYDROCHLORIDE
  36. FLUTICASONE [Concomitant]
     Active Substance: FLUTICASONE
  37. VITAMINS [Concomitant]
     Active Substance: VITAMINS
  38. VITAMIN D3 [Concomitant]
     Active Substance: CHOLECALCIFEROL
  39. AZITHROMYCIN [Concomitant]
     Active Substance: AZITHROMYCIN
  40. PERCOCET [Concomitant]
     Active Substance: ACETAMINOPHEN\OXYCODONE HYDROCHLORIDE
  41. ACETAMINOPHEN [Concomitant]
     Active Substance: ACETAMINOPHEN
  42. TORSEMIDE [Concomitant]
     Active Substance: TORSEMIDE
  43. ALDACTONE [Concomitant]
     Active Substance: SPIRONOLACTONE
  44. METOLAZONE [Concomitant]
     Active Substance: METOLAZONE
  45. HYDRALAZINE [Concomitant]
     Active Substance: HYDRALAZINE HYDROCHLORIDE
  46. LABETALOL [Concomitant]
     Active Substance: LABETALOL\LABETALOL HYDROCHLORIDE
  47. REGLAN [Concomitant]
     Active Substance: METOCLOPRAMIDE HYDROCHLORIDE
  48. BENADRYL [Concomitant]
     Active Substance: DIPHENHYDRAMINE HYDROCHLORIDE
  49. VERSED [Concomitant]
     Active Substance: MIDAZOLAM HYDROCHLORIDE
  50. SUBLIMAZE [Concomitant]
     Active Substance: FENTANYL CITRATE
  51. CLINDAMYCIN [Concomitant]
     Active Substance: CLINDAMYCIN
  52. ALBUTEROL [Concomitant]
     Active Substance: ALBUTEROL
  53. ACETIC ACID\TRIAMCINOLONE [Concomitant]
     Active Substance: ACETIC ACID\TRIAMCINOLONE
  54. FLONASE [Concomitant]
     Active Substance: FLUTICASONE PROPIONATE

REACTIONS (11)
  - Chronic kidney disease [Not Recovered/Not Resolved]
  - End stage renal disease [Not Recovered/Not Resolved]
  - Acute kidney injury [Not Recovered/Not Resolved]
  - Renal failure [Unknown]
  - Hyperparathyroidism secondary [Unknown]
  - Pulmonary oedema [Unknown]
  - Hypervolaemia [Unknown]
  - Renal tubular necrosis [Unknown]
  - Nephrogenic anaemia [Unknown]
  - Tubulointerstitial nephritis [Unknown]
  - Chronic kidney disease-mineral and bone disorder [Unknown]

NARRATIVE: CASE EVENT DATE: 20140521
